FAERS Safety Report 14579420 (Version 3)
Quarter: 2018Q2

REPORT INFORMATION
  Report Type: Report from Study
  Country: US (occurrence: US)
  Receive Date: 20180227
  Receipt Date: 20180426
  Transmission Date: 20180711
  Serious: Yes (Hospitalization)
  Sender: FDA-Public Use
  Company Number: US-ACTELION-A-NJ2016-139477

PATIENT
  Age: 35 Year
  Sex: Female
  Weight: 104.31 kg

DRUGS (6)
  1. VELETRI [Suspect]
     Active Substance: EPOPROSTENOL
     Indication: PULMONARY ARTERIAL HYPERTENSION
     Dosage: 18 NG/KG, PER MIN
     Route: 042
     Dates: start: 20150909
  2. VELETRI [Suspect]
     Active Substance: EPOPROSTENOL
     Dosage: 20.5 NG/KG, PER MIN
     Route: 042
  3. COUMADIN [Concomitant]
     Active Substance: WARFARIN SODIUM
  4. TRACLEER [Suspect]
     Active Substance: BOSENTAN
     Indication: PULMONARY ARTERIAL HYPERTENSION
     Dosage: 125 MG, BID
     Route: 048
  5. TRACLEER [Suspect]
     Active Substance: BOSENTAN
     Dosage: 125 MG, BID
     Route: 048
     Dates: start: 20150904
  6. REVATIO [Concomitant]
     Active Substance: SILDENAFIL CITRATE

REACTIONS (34)
  - Heart valve incompetence [Unknown]
  - Catheter site inflammation [Recovered/Resolved]
  - Throat tightness [Unknown]
  - Catheter site pain [Recovered/Resolved]
  - Chest pain [Unknown]
  - Productive cough [Unknown]
  - Electrocardiogram abnormal [Unknown]
  - Presyncope [Unknown]
  - Vomiting [Unknown]
  - Hyperhidrosis [Unknown]
  - Device related infection [Recovered/Resolved]
  - Heart rate increased [Unknown]
  - Transfusion [Unknown]
  - Pain in jaw [Unknown]
  - Insomnia [Unknown]
  - Myalgia [Unknown]
  - Dizziness [Unknown]
  - Blood potassium decreased [Unknown]
  - Pyrexia [Unknown]
  - Catheter site discharge [Recovered/Resolved]
  - Catheter placement [Unknown]
  - Dyspnoea [Unknown]
  - Catheterisation cardiac [Unknown]
  - Oropharyngeal pain [Unknown]
  - Rash pruritic [Unknown]
  - Therapy non-responder [Unknown]
  - Pulmonary arterial pressure increased [Unknown]
  - Pain in extremity [Unknown]
  - Pain [Unknown]
  - Oxygen saturation decreased [Unknown]
  - Palpitations [Unknown]
  - Pulmonary arterial hypertension [Unknown]
  - Diarrhoea [Unknown]
  - Flushing [Unknown]

NARRATIVE: CASE EVENT DATE: 20160712
